FAERS Safety Report 10242001 (Version 1)
Quarter: 2014Q2

REPORT INFORMATION
  Report Type: Spontaneous
  Country: US (occurrence: US)
  Receive Date: 20140617
  Receipt Date: 20140617
  Transmission Date: 20141212
  Serious: No
  Sender: FDA-Public Use
  Company Number: US-PFIZER INC-2014163991

PATIENT
  Age: 37 Year
  Sex: Female
  Weight: 54.42 kg

DRUGS (2)
  1. GABAPENTIN [Suspect]
     Indication: FACIAL NEURALGIA
     Dosage: 300 MG, UNK
     Route: 048
     Dates: start: 201312, end: 201312
  2. GABAPENTIN [Suspect]
     Indication: MIGRAINE

REACTIONS (2)
  - Somnolence [Unknown]
  - Drug ineffective [Unknown]
